FAERS Safety Report 20532848 (Version 5)
Quarter: 2022Q2

REPORT INFORMATION
  Report Type: Report from Study
  Country: CN (occurrence: CN)
  Receive Date: 20220301
  Receipt Date: 20220421
  Transmission Date: 20220721
  Serious: Yes (Hospitalization)
  Sender: FDA-Public Use
  Company Number: CN-GLAXOSMITHKLINE-CN2022GSK037179

PATIENT
  Age: 57 Year
  Sex: Female
  Weight: 53 kg

DRUGS (4)
  1. NIRAPARIB [Suspect]
     Active Substance: NIRAPARIB
     Indication: Gallbladder cancer
     Dosage: 200 MG, QD
     Route: 048
     Dates: start: 20220120, end: 20220317
  2. TEBOTELIMAB [Suspect]
     Active Substance: TEBOTELIMAB
     Indication: Gallbladder cancer
     Dosage: 600 MG, Q2W
     Route: 065
     Dates: start: 20220120, end: 20220120
  3. TEBOTELIMAB [Suspect]
     Active Substance: TEBOTELIMAB
     Dosage: 600 MG, Q2W
     Route: 065
     Dates: start: 20220317, end: 20220317
  4. ALPRAZOLAM [Concomitant]
     Active Substance: ALPRAZOLAM
     Indication: Insomnia
     Dosage: 0.4 MG, QD
     Route: 048
     Dates: start: 202111

REACTIONS (1)
  - Biliary tract infection [Recovered/Resolved]

NARRATIVE: CASE EVENT DATE: 20220221
